FAERS Safety Report 18202330 (Version 1)
Quarter: 2020Q3

REPORT INFORMATION
  Report Type: Spontaneous
  Country: AI (occurrence: AI)
  Receive Date: 20200826
  Receipt Date: 20200826
  Transmission Date: 20201103
  Serious: No
  Sender: FDA-Public Use
  Company Number: None

PATIENT
  Age: 39 Year
  Sex: Female
  Weight: 118.84 kg

DRUGS (2)
  1. OTEZLA [Suspect]
     Active Substance: APREMILAST
     Route: 048
     Dates: start: 202004
  2. SILIQ [Suspect]
     Active Substance: BRODALUMAB
     Dosage: ?          OTHER FREQUENCY:EVERY2WEEKSASDIR ;?

REACTIONS (1)
  - Peripheral swelling [None]
